FAERS Safety Report 25231591 (Version 1)
Quarter: 2025Q2

REPORT INFORMATION
  Report Type: Report from Study
  Country: MA (occurrence: MA)
  Receive Date: 20250423
  Receipt Date: 20250423
  Transmission Date: 20250716
  Serious: Yes (Death, Other)
  Sender: ROCHE
  Company Number: MA-BoehringerIngelheim-2025-BI-022314

PATIENT
  Age: 65 Year
  Sex: Male

DRUGS (1)
  1. METALYSE [Suspect]
     Active Substance: TENECTEPLASE
     Indication: Acute myocardial infarction
     Route: 042

REACTIONS (10)
  - Cardio-respiratory arrest [Fatal]
  - Cardiogenic shock [Unknown]
  - Acute kidney injury [Unknown]
  - Alveolar lung disease [Unknown]
  - Pulmonary alveolar haemorrhage [Unknown]
  - Treatment failure [Unknown]
  - Arrhythmic storm [Unknown]
  - Ventricular fibrillation [Unknown]
  - Haemoptysis [Unknown]
  - Pneumonia [Unknown]
